FAERS Safety Report 9965187 (Version 1)
Quarter: 2014Q1

REPORT INFORMATION
  Report Type: Report from Study
  Country: US (occurrence: US)
  Receive Date: 20140305
  Receipt Date: 20140305
  Transmission Date: 20141002
  Serious: No
  Sender: FDA-Public Use
  Company Number: US-ABBVIE-13P-163-1125807-00

PATIENT
  Sex: Female

DRUGS (10)
  1. HUMIRA [Suspect]
     Indication: RHEUMATOID ARTHRITIS
     Route: 058
     Dates: start: 2009, end: 2010
  2. HUMIRA [Suspect]
     Route: 058
     Dates: start: 201304
  3. METHYLPHENIDATE [Concomitant]
     Indication: DISTURBANCE IN ATTENTION
     Dosage: 20 MG AND 10 MG TABS THREE TIMES DAILY
  4. LISINOPRIL [Concomitant]
     Indication: HYPERTENSION
     Dosage: 10/12.5 MG
  5. LISINOPRIL [Concomitant]
     Indication: DIURETIC THERAPY
  6. APRESOLINE [Concomitant]
     Indication: PRODUCT USED FOR UNKNOWN INDICATION
  7. ALLEGRA [Concomitant]
     Indication: PRODUCT USED FOR UNKNOWN INDICATION
  8. MONTELUKAST [Concomitant]
     Indication: HYPERSENSITIVITY
  9. UNKNOWN MEDICATION [Concomitant]
     Indication: PRODUCT USED FOR UNKNOWN INDICATION
  10. UNKNOWN BLOOD PRESSURE MEDICATION [Concomitant]
     Indication: BLOOD PRESSURE

REACTIONS (2)
  - Depression [Recovering/Resolving]
  - Rheumatoid arthritis [Recovering/Resolving]
